FAERS Safety Report 26155367 (Version 1)
Quarter: 2025Q4

REPORT INFORMATION
  Report Type: Spontaneous
  Country: EU (occurrence: EU)
  Receive Date: 20251215
  Receipt Date: 20251215
  Transmission Date: 20260118
  Serious: Yes (Other)
  Sender: AUROBINDO
  Company Number: EU-UCBSA-2025073377

PATIENT
  Age: 36 Year
  Sex: Female

DRUGS (12)
  1. LACOSAMIDE [Suspect]
     Active Substance: LACOSAMIDE
     Indication: Seizure
     Dosage: 400 MILLIGRAM, ONCE A DAY (400 MILLIGRAM, ONCE DAILY (QD)
     Route: 065
  2. LACOSAMIDE [Suspect]
     Active Substance: LACOSAMIDE
     Dosage: 100 + 100 + 200 MG
     Route: 065
  3. CARBAMAZEPINE [Suspect]
     Active Substance: CARBAMAZEPINE
     Indication: Seizure
     Dosage: UNK
     Route: 065
  4. TOPIRAMATE [Suspect]
     Active Substance: TOPIRAMATE
     Indication: Seizure
     Dosage: 200 MILLIGRAM, ONCE A DAY (200 MILLIGRAM, ONCE DAILY (QD)
     Route: 065
  5. TOPIRAMATE [Suspect]
     Active Substance: TOPIRAMATE
     Dosage: 400 MILLIGRAM, ONCE A DAY (400 MILLIGRAM, ONCE DAILY (QD)
     Route: 065
  6. BRIVARACETAM [Suspect]
     Active Substance: BRIVARACETAM
     Indication: Seizure
     Dosage: 100 MILLIGRAM, ONCE A DAY (100 MILLIGRAM, ONCE DAILY (QD)
     Route: 065
  7. BRIVARACETAM [Suspect]
     Active Substance: BRIVARACETAM
     Dosage: 200 MILLIGRAM, ONCE A DAY (200 MILLIGRAM, ONCE DAILY (QD)
     Route: 065
  8. VALPROATE [Suspect]
     Active Substance: VALPROIC ACID
     Indication: Seizure
     Dosage: UNK
     Route: 065
  9. PERAMPANEL [Suspect]
     Active Substance: PERAMPANEL
     Indication: Seizure
     Dosage: UNK
     Route: 065
  10. CLOBAZAM [Suspect]
     Active Substance: CLOBAZAM
     Indication: Seizure
     Dosage: UNK
     Route: 065
  11. CENOBAMATE [Concomitant]
     Active Substance: CENOBAMATE
     Indication: Seizure
     Dosage: 200 MILLIGRAM, ONCE A DAY (200 MILLIGRAM, ONCE DAILY (QD)
     Route: 065
  12. CENOBAMATE [Concomitant]
     Active Substance: CENOBAMATE
     Dosage: 250 MILLIGRAM, ONCE A DAY (250 MILLIGRAM, ONCE DAILY (QD)
     Route: 065

REACTIONS (2)
  - Seizure cluster [Recovering/Resolving]
  - Multiple-drug resistance [Unknown]
